FAERS Safety Report 7154473-4 (Version None)
Quarter: 2010Q4

REPORT INFORMATION
  Report Type: 
  Country: None (occurrence: None)
  Receive Date: 20101213
  Receipt Date: 20101206
  Transmission Date: 20110411
  Serious: Yes (Hospitalization)
  Sender: FDA-Public Use
  Company Number: US-GILEAD-2010-0032484

PATIENT
  Sex: Female

DRUGS (11)
  1. LETAIRIS [Suspect]
     Indication: PULMONARY ARTERIAL HYPERTENSION
     Route: 048
     Dates: start: 20100406
  2. ASPIRIN [Concomitant]
  3. PLAVIX [Concomitant]
  4. DIGOXIN [Concomitant]
  5. LASIX [Concomitant]
  6. GABAPENTIN [Concomitant]
  7. HYDROCHLOROTHIAZIDE [Concomitant]
  8. LISINOPRIL [Concomitant]
  9. METOPROLOL [Concomitant]
  10. PREDNISONE [Concomitant]
  11. ZOCOR [Concomitant]

REACTIONS (1)
  - CEREBROVASCULAR ACCIDENT [None]
